FAERS Safety Report 6242645-2 (Version None)
Quarter: 2009Q2

REPORT INFORMATION
  Report Type: 
  Country: None (occurrence: None)
  Receive Date: 20090622
  Receipt Date: 20090622
  Transmission Date: 20091009
  Serious: Yes (Other)
  Sender: FDA-Public Use
  Company Number: None

PATIENT
  Age: 52 Year
  Sex: Female
  Weight: 65.7716 kg

DRUGS (1)
  1. ZICAM NASAL SWABS  502053 [Suspect]
     Indication: ANOSMIA
     Dosage: 3 OVER 3 DAYS NASAL
     Route: 045
     Dates: start: 20081123, end: 20081125

REACTIONS (1)
  - HYPOSMIA [None]
